FAERS Safety Report 6425308-X (Version None)
Quarter: 2009Q4

REPORT INFORMATION
  Report Type: 
  Country: None (occurrence: None)
  Receive Date: 20091103
  Receipt Date: 20091028
  Transmission Date: 20100525
  Serious: Yes (Other)
  Sender: FDA-Public Use
  Company Number: A0813745A

PATIENT
  Age: 35 Year
  Sex: Female
  Weight: 109 kg

DRUGS (10)
  1. ALLI [Suspect]
     Dates: start: 20090701, end: 20091022
  2. LYRICA [Concomitant]
  3. DICYCLOMINE [Concomitant]
  4. LAMICTAL [Concomitant]
  5. AMRIX [Concomitant]
  6. AMITRIPTYLINE [Concomitant]
  7. HYDROCODONE [Concomitant]
  8. FOLIC ACID [Concomitant]
  9. VITAMIN AND MINERAL PRENATAL SUPPLEMENT W/ FOLIC ACID CAP [Concomitant]
  10. STOOL SOFTENER [Concomitant]

REACTIONS (7)
  - ABDOMINAL DISCOMFORT [None]
  - ABORTION SPONTANEOUS [None]
  - BREAST TENDERNESS [None]
  - DRUG EXPOSURE DURING PREGNANCY [None]
  - METRORRHAGIA [None]
  - NAUSEA [None]
  - VAGINAL HAEMORRHAGE [None]
